FAERS Safety Report 10050415 (Version 1)
Quarter: 2014Q2

REPORT INFORMATION
  Report Type: Spontaneous
  Country: FR (occurrence: FR)
  Receive Date: 20140401
  Receipt Date: 20140401
  Transmission Date: 20141212
  Serious: Yes (Other)
  Sender: FDA-Public Use
  Company Number: FR-ASTRAZENECA-2014SE21965

PATIENT
  Age: 25835 Day
  Sex: Male

DRUGS (13)
  1. INEXIUM [Suspect]
     Route: 048
  2. GLIVEC [Suspect]
     Indication: CHRONIC MYELOID LEUKAEMIA
     Route: 048
     Dates: start: 20131029, end: 20131221
  3. GLIVEC [Suspect]
     Indication: CHRONIC MYELOID LEUKAEMIA
     Route: 048
     Dates: start: 20131221
  4. PLAVIX [Suspect]
     Route: 048
  5. COAPROVEL [Suspect]
     Route: 048
  6. VELMETIA [Concomitant]
     Dosage: TWICE DAILY
     Route: 048
  7. LERCAN [Concomitant]
     Route: 048
  8. CRESTOR [Concomitant]
     Route: 048
  9. PERMIXON [Concomitant]
     Route: 048
  10. OMEXEL [Concomitant]
     Route: 048
  11. TARDYFERON [Concomitant]
     Route: 048
  12. NOCTAMIDE [Concomitant]
     Route: 048
  13. ALPRAZOLAM [Concomitant]
     Route: 048

REACTIONS (2)
  - Lichen planus [Recovered/Resolved]
  - Toxic skin eruption [Recovered/Resolved]
